FAERS Safety Report 21542570 (Version 1)
Quarter: 2022Q4

REPORT INFORMATION
  Report Type: Spontaneous
  Country: US (occurrence: US)
  Receive Date: 20221102
  Receipt Date: 20221102
  Transmission Date: 20230113
  Serious: No
  Sender: FDA-Public Use
  Company Number: US-RVL_Pharmaceuticals-USA-POI1255202200302

PATIENT
  Age: 36 Year
  Sex: Female

DRUGS (1)
  1. UPNEEQ [Suspect]
     Active Substance: OXYMETAZOLINE HYDROCHLORIDE
     Indication: Eyelid ptosis
     Dosage: OD AS NEEDED
     Route: 047
     Dates: start: 202112

REACTIONS (5)
  - Diplopia [Recovered/Resolved]
  - Photophobia [Recovered/Resolved]
  - Ocular hyperaemia [Not Recovered/Not Resolved]
  - Astigmatism [Recovered/Resolved]
  - Off label use [Recovered/Resolved]

NARRATIVE: CASE EVENT DATE: 20220101
